FAERS Safety Report 7030905-7 (Version None)
Quarter: 2010Q4

REPORT INFORMATION
  Report Type: 
  Country: None (occurrence: None)
  Receive Date: 20101006
  Receipt Date: 20100825
  Transmission Date: 20110411
  Serious: Yes (Life-Threatening, Hospitalization, Other)
  Sender: FDA-Public Use
  Company Number: US-BAXTER-2010BH000145

PATIENT
  Age: 32 Year
  Sex: Male
  Weight: 134 kg

DRUGS (191)
  1. HEPARIN SODIUM INJECTION [Suspect]
     Indication: INTRAVENOUS CATHETER MANAGEMENT
     Route: 042
     Dates: start: 20080113, end: 20080122
  2. HEPARIN SODIUM INJECTION [Suspect]
     Indication: THROMBOSIS PROPHYLAXIS
     Route: 042
     Dates: start: 20080113, end: 20080122
  3. HEPARIN SODIUM INJECTION [Suspect]
     Indication: CATHETERISATION CARDIAC
     Route: 042
     Dates: start: 20080113, end: 20080122
  4. HEPARIN SODIUM INJECTION [Suspect]
     Indication: HAEMODIALYSIS
     Route: 042
     Dates: start: 20080113, end: 20080122
  5. HEPARIN SODIUM INJECTION [Suspect]
     Route: 042
     Dates: start: 20080115, end: 20080115
  6. HEPARIN SODIUM INJECTION [Suspect]
     Route: 042
     Dates: start: 20080115, end: 20080115
  7. HEPARIN SODIUM INJECTION [Suspect]
     Route: 042
     Dates: start: 20080115, end: 20080115
  8. HEPARIN SODIUM INJECTION [Suspect]
     Route: 042
     Dates: start: 20080115, end: 20080115
  9. HEPARIN SODIUM INJECTION [Suspect]
     Route: 042
     Dates: start: 20080115, end: 20080115
  10. HEPARIN SODIUM INJECTION [Suspect]
     Route: 042
     Dates: start: 20080115, end: 20080115
  11. HEPARIN SODIUM INJECTION [Suspect]
     Route: 042
     Dates: start: 20080115, end: 20080115
  12. HEPARIN SODIUM INJECTION [Suspect]
     Route: 042
     Dates: start: 20080115, end: 20080115
  13. HEPARIN SODIUM INJECTION [Suspect]
     Route: 042
     Dates: start: 20080115, end: 20080115
  14. HEPARIN SODIUM INJECTION [Suspect]
     Route: 042
     Dates: start: 20080115, end: 20080115
  15. HEPARIN SODIUM INJECTION [Suspect]
     Route: 042
     Dates: start: 20080115, end: 20080115
  16. HEPARIN SODIUM INJECTION [Suspect]
     Route: 042
     Dates: start: 20080115, end: 20080115
  17. HEPARIN SODIUM INJECTION [Suspect]
     Route: 042
     Dates: start: 20080115, end: 20080115
  18. HEPARIN SODIUM INJECTION [Suspect]
     Route: 042
     Dates: start: 20080115, end: 20080115
  19. HEPARIN SODIUM INJECTION [Suspect]
     Route: 042
     Dates: start: 20080115, end: 20080115
  20. HEPARIN SODIUM INJECTION [Suspect]
     Route: 042
     Dates: start: 20080115, end: 20080115
  21. HEPARIN SODIUM INJECTION [Suspect]
     Route: 042
     Dates: start: 20080115, end: 20080115
  22. HEPARIN SODIUM INJECTION [Suspect]
     Route: 042
     Dates: start: 20080115, end: 20080115
  23. HEPARIN SODIUM INJECTION [Suspect]
     Route: 042
     Dates: start: 20080115, end: 20080115
  24. HEPARIN SODIUM INJECTION [Suspect]
     Route: 042
     Dates: start: 20080115, end: 20080115
  25. HEPARIN SODIUM INJECTION [Suspect]
     Route: 042
     Dates: start: 20080115, end: 20080115
  26. HEPARIN SODIUM INJECTION [Suspect]
     Route: 042
     Dates: start: 20080115, end: 20080115
  27. HEPARIN SODIUM INJECTION [Suspect]
     Route: 042
     Dates: start: 20080115, end: 20080115
  28. HEPARIN SODIUM INJECTION [Suspect]
     Route: 042
     Dates: start: 20080115, end: 20080115
  29. HEPARIN SODIUM INJECTION [Suspect]
     Route: 042
     Dates: start: 20080115, end: 20080115
  30. HEPARIN SODIUM INJECTION [Suspect]
     Route: 042
     Dates: start: 20080115, end: 20080115
  31. HEPARIN SODIUM INJECTION [Suspect]
     Route: 042
     Dates: start: 20080115, end: 20080115
  32. HEPARIN SODIUM INJECTION [Suspect]
     Route: 042
     Dates: start: 20080115, end: 20080115
  33. HEPARIN SODIUM INJECTION [Suspect]
     Route: 042
     Dates: start: 20080115, end: 20080115
  34. HEPARIN SODIUM INJECTION [Suspect]
     Route: 042
     Dates: start: 20080115, end: 20080115
  35. HEPARIN SODIUM INJECTION [Suspect]
     Route: 042
     Dates: start: 20080115, end: 20080115
  36. HEPARIN SODIUM INJECTION [Suspect]
     Route: 042
     Dates: start: 20080115, end: 20080115
  37. HEPARIN SODIUM INJECTION [Suspect]
     Route: 042
     Dates: start: 20080115, end: 20080115
  38. HEPARIN SODIUM INJECTION [Suspect]
     Route: 042
     Dates: start: 20080115, end: 20080115
  39. HEPARIN SODIUM INJECTION [Suspect]
     Route: 042
     Dates: start: 20080115, end: 20080115
  40. HEPARIN SODIUM INJECTION [Suspect]
     Route: 042
     Dates: start: 20080115, end: 20080115
  41. HEPARIN SODIUM INJECTION [Suspect]
     Route: 042
     Dates: start: 20080128, end: 20080128
  42. HEPARIN SODIUM INJECTION [Suspect]
     Route: 042
     Dates: start: 20080128, end: 20080128
  43. HEPARIN SODIUM INJECTION [Suspect]
     Route: 042
     Dates: start: 20080128, end: 20080128
  44. HEPARIN SODIUM INJECTION [Suspect]
     Route: 042
     Dates: start: 20080128, end: 20080128
  45. HEPARIN SODIUM INJECTION [Suspect]
     Route: 058
     Dates: start: 20080206, end: 20080220
  46. HEPARIN SODIUM INJECTION [Suspect]
     Route: 058
     Dates: start: 20080206, end: 20080220
  47. HEPARIN SODIUM INJECTION [Suspect]
     Route: 058
     Dates: start: 20080206, end: 20080220
  48. HEPARIN SODIUM INJECTION [Suspect]
     Route: 058
     Dates: start: 20080206, end: 20080220
  49. HEPARIN SODIUM INJECTION [Suspect]
     Route: 058
     Dates: start: 20080217, end: 20080219
  50. HEPARIN SODIUM INJECTION [Suspect]
     Route: 058
     Dates: start: 20080217, end: 20080219
  51. HEPARIN SODIUM INJECTION [Suspect]
     Route: 058
     Dates: start: 20080217, end: 20080219
  52. HEPARIN SODIUM INJECTION [Suspect]
     Route: 058
     Dates: start: 20080217, end: 20080219
  53. HEPARIN SODIUM INJECTION [Suspect]
     Route: 042
     Dates: start: 20080128, end: 20080128
  54. HEPARIN SODIUM INJECTION [Suspect]
     Route: 042
     Dates: start: 20080128, end: 20080128
  55. HEPARIN SODIUM INJECTION [Suspect]
     Route: 042
     Dates: start: 20080128, end: 20080128
  56. HEPARIN SODIUM INJECTION [Suspect]
     Route: 042
     Dates: start: 20080128, end: 20080128
  57. HEPARIN SODIUM INJECTION [Suspect]
     Route: 042
     Dates: start: 20080128, end: 20080128
  58. HEPARIN SODIUM INJECTION [Suspect]
     Route: 042
     Dates: start: 20080128, end: 20080128
  59. HEPARIN SODIUM INJECTION [Suspect]
     Route: 042
     Dates: start: 20080128, end: 20080128
  60. HEPARIN SODIUM INJECTION [Suspect]
     Route: 042
     Dates: start: 20080128, end: 20080128
  61. HEPARIN SODIUM INJECTION [Suspect]
     Route: 042
     Dates: start: 20080128, end: 20080128
  62. HEPARIN SODIUM INJECTION [Suspect]
     Route: 042
     Dates: start: 20080128, end: 20080128
  63. HEPARIN SODIUM INJECTION [Suspect]
     Route: 042
     Dates: start: 20080128, end: 20080128
  64. HEPARIN SODIUM INJECTION [Suspect]
     Route: 042
     Dates: start: 20080128, end: 20080128
  65. HEPARIN SODIUM INJECTION [Suspect]
     Route: 042
     Dates: start: 20080128, end: 20080128
  66. HEPARIN SODIUM INJECTION [Suspect]
     Route: 042
     Dates: start: 20080128, end: 20080128
  67. HEPARIN SODIUM INJECTION [Suspect]
     Route: 042
     Dates: start: 20080128, end: 20080128
  68. HEPARIN SODIUM INJECTION [Suspect]
     Route: 042
     Dates: start: 20080128, end: 20080128
  69. HEPARIN SODIUM INJECTION [Suspect]
     Route: 042
     Dates: start: 20080128, end: 20080128
  70. HEPARIN SODIUM INJECTION [Suspect]
     Route: 042
     Dates: start: 20080128, end: 20080128
  71. HEPARIN SODIUM INJECTION [Suspect]
     Route: 042
     Dates: start: 20080128, end: 20080128
  72. HEPARIN SODIUM INJECTION [Suspect]
     Route: 042
     Dates: start: 20080128, end: 20080128
  73. HEPARIN SODIUM INJECTION [Suspect]
     Route: 042
     Dates: start: 20080128, end: 20080128
  74. HEPARIN SODIUM INJECTION [Suspect]
     Route: 042
     Dates: start: 20080128, end: 20080128
  75. HEPARIN SODIUM INJECTION [Suspect]
     Route: 042
     Dates: start: 20080128, end: 20080128
  76. HEPARIN SODIUM INJECTION [Suspect]
     Route: 042
     Dates: start: 20080128, end: 20080128
  77. HEPARIN SODIUM INJECTION [Suspect]
     Route: 042
     Dates: start: 20080128, end: 20080128
  78. HEPARIN SODIUM INJECTION [Suspect]
     Route: 042
     Dates: start: 20080128, end: 20080128
  79. HEPARIN SODIUM INJECTION [Suspect]
     Route: 042
     Dates: start: 20080128, end: 20080128
  80. HEPARIN SODIUM INJECTION [Suspect]
     Route: 042
     Dates: start: 20080128, end: 20080128
  81. HEPARIN SODIUM INJECTION [Suspect]
     Route: 042
     Dates: start: 20080128, end: 20080128
  82. HEPARIN SODIUM INJECTION [Suspect]
     Route: 042
     Dates: start: 20080128, end: 20080128
  83. HEPARIN SODIUM INJECTION [Suspect]
     Route: 042
     Dates: start: 20080128, end: 20080128
  84. HEPARIN SODIUM INJECTION [Suspect]
     Route: 042
     Dates: start: 20080128, end: 20080128
  85. HEPARIN SODIUM INJECTION [Suspect]
     Route: 058
     Dates: start: 20080206, end: 20080220
  86. HEPARIN SODIUM INJECTION [Suspect]
     Route: 058
     Dates: start: 20080206, end: 20080220
  87. HEPARIN SODIUM INJECTION [Suspect]
     Route: 058
     Dates: start: 20080206, end: 20080220
  88. HEPARIN SODIUM INJECTION [Suspect]
     Route: 058
     Dates: start: 20080206, end: 20080220
  89. HEPARIN SODIUM INJECTION [Suspect]
     Route: 058
     Dates: start: 20080206, end: 20080220
  90. HEPARIN SODIUM INJECTION [Suspect]
     Route: 058
     Dates: start: 20080206, end: 20080220
  91. HEPARIN SODIUM INJECTION [Suspect]
     Route: 058
     Dates: start: 20080206, end: 20080220
  92. HEPARIN SODIUM INJECTION [Suspect]
     Route: 058
     Dates: start: 20080206, end: 20080220
  93. HEPARIN SODIUM INJECTION [Suspect]
     Route: 058
     Dates: start: 20080206, end: 20080220
  94. HEPARIN SODIUM INJECTION [Suspect]
     Route: 058
     Dates: start: 20080206, end: 20080220
  95. HEPARIN SODIUM INJECTION [Suspect]
     Route: 058
     Dates: start: 20080206, end: 20080220
  96. HEPARIN SODIUM INJECTION [Suspect]
     Route: 058
     Dates: start: 20080206, end: 20080220
  97. HEPARIN SODIUM INJECTION [Suspect]
     Route: 058
     Dates: start: 20080206, end: 20080220
  98. HEPARIN SODIUM INJECTION [Suspect]
     Route: 058
     Dates: start: 20080206, end: 20080220
  99. HEPARIN SODIUM INJECTION [Suspect]
     Route: 058
     Dates: start: 20080206, end: 20080220
  100. HEPARIN SODIUM INJECTION [Suspect]
     Route: 058
     Dates: start: 20080206, end: 20080220
  101. HEPARIN SODIUM INJECTION [Suspect]
     Route: 058
     Dates: start: 20080206, end: 20080220
  102. HEPARIN SODIUM INJECTION [Suspect]
     Route: 058
     Dates: start: 20080206, end: 20080220
  103. HEPARIN SODIUM INJECTION [Suspect]
     Route: 058
     Dates: start: 20080206, end: 20080220
  104. HEPARIN SODIUM INJECTION [Suspect]
     Route: 058
     Dates: start: 20080206, end: 20080220
  105. HEPARIN SODIUM INJECTION [Suspect]
     Route: 058
     Dates: start: 20080206, end: 20080220
  106. HEPARIN SODIUM INJECTION [Suspect]
     Route: 058
     Dates: start: 20080206, end: 20080220
  107. HEPARIN SODIUM INJECTION [Suspect]
     Route: 058
     Dates: start: 20080206, end: 20080220
  108. HEPARIN SODIUM INJECTION [Suspect]
     Route: 058
     Dates: start: 20080206, end: 20080220
  109. HEPARIN SODIUM INJECTION [Suspect]
     Route: 058
     Dates: start: 20080206, end: 20080220
  110. HEPARIN SODIUM INJECTION [Suspect]
     Route: 058
     Dates: start: 20080206, end: 20080220
  111. HEPARIN SODIUM INJECTION [Suspect]
     Route: 058
     Dates: start: 20080206, end: 20080220
  112. HEPARIN SODIUM INJECTION [Suspect]
     Route: 058
     Dates: start: 20080206, end: 20080220
  113. HEPARIN SODIUM INJECTION [Suspect]
     Route: 058
     Dates: start: 20080206, end: 20080220
  114. HEPARIN SODIUM INJECTION [Suspect]
     Route: 058
     Dates: start: 20080206, end: 20080220
  115. HEPARIN SODIUM INJECTION [Suspect]
     Route: 058
     Dates: start: 20080206, end: 20080220
  116. HEPARIN SODIUM INJECTION [Suspect]
     Route: 058
     Dates: start: 20080206, end: 20080220
  117. HEPARIN SODIUM INJECTION [Suspect]
     Route: 058
     Dates: start: 20080217, end: 20080219
  118. HEPARIN SODIUM INJECTION [Suspect]
     Route: 058
     Dates: start: 20080217, end: 20080219
  119. HEPARIN SODIUM INJECTION [Suspect]
     Route: 058
     Dates: start: 20080217, end: 20080219
  120. HEPARIN SODIUM INJECTION [Suspect]
     Route: 058
     Dates: start: 20080217, end: 20080219
  121. HEPARIN SODIUM INJECTION [Suspect]
     Route: 058
     Dates: start: 20080217, end: 20080219
  122. HEPARIN SODIUM INJECTION [Suspect]
     Route: 058
     Dates: start: 20080217, end: 20080219
  123. HEPARIN SODIUM INJECTION [Suspect]
     Route: 058
     Dates: start: 20080217, end: 20080219
  124. HEPARIN SODIUM INJECTION [Suspect]
     Route: 058
     Dates: start: 20080217, end: 20080219
  125. HEPARIN SODIUM INJECTION [Suspect]
     Route: 058
     Dates: start: 20080217, end: 20080219
  126. HEPARIN SODIUM INJECTION [Suspect]
     Route: 058
     Dates: start: 20080217, end: 20080219
  127. HEPARIN SODIUM INJECTION [Suspect]
     Route: 058
     Dates: start: 20080217, end: 20080219
  128. HEPARIN SODIUM INJECTION [Suspect]
     Route: 058
     Dates: start: 20080217, end: 20080219
  129. HEPARIN SODIUM INJECTION [Suspect]
     Route: 058
     Dates: start: 20080217, end: 20080219
  130. HEPARIN SODIUM INJECTION [Suspect]
     Route: 058
     Dates: start: 20080217, end: 20080219
  131. HEPARIN SODIUM INJECTION [Suspect]
     Route: 058
     Dates: start: 20080217, end: 20080219
  132. HEPARIN SODIUM INJECTION [Suspect]
     Route: 058
     Dates: start: 20080217, end: 20080219
  133. HEPARIN SODIUM INJECTION [Suspect]
     Route: 058
     Dates: start: 20080217, end: 20080219
  134. HEPARIN SODIUM INJECTION [Suspect]
     Route: 058
     Dates: start: 20080217, end: 20080219
  135. HEPARIN SODIUM INJECTION [Suspect]
     Route: 058
     Dates: start: 20080217, end: 20080219
  136. HEPARIN SODIUM INJECTION [Suspect]
     Route: 058
     Dates: start: 20080217, end: 20080219
  137. HEPARIN SODIUM INJECTION [Suspect]
     Route: 058
     Dates: start: 20080217, end: 20080219
  138. HEPARIN SODIUM INJECTION [Suspect]
     Route: 058
     Dates: start: 20080217, end: 20080219
  139. HEPARIN SODIUM INJECTION [Suspect]
     Route: 058
     Dates: start: 20080217, end: 20080219
  140. HEPARIN SODIUM INJECTION [Suspect]
     Route: 058
     Dates: start: 20080217, end: 20080219
  141. HEPARIN SODIUM INJECTION [Suspect]
     Route: 058
     Dates: start: 20080217, end: 20080219
  142. HEPARIN SODIUM INJECTION [Suspect]
     Route: 058
     Dates: start: 20080217, end: 20080219
  143. HEPARIN SODIUM INJECTION [Suspect]
     Route: 058
     Dates: start: 20080217, end: 20080219
  144. HEPARIN SODIUM INJECTION [Suspect]
     Route: 058
     Dates: start: 20080217, end: 20080219
  145. HEPARIN SODIUM INJECTION [Suspect]
     Route: 058
     Dates: start: 20080217, end: 20080219
  146. HEPARIN SODIUM INJECTION [Suspect]
     Route: 058
     Dates: start: 20080217, end: 20080219
  147. HEPARIN SODIUM INJECTION [Suspect]
     Route: 058
     Dates: start: 20080217, end: 20080219
  148. HEPARIN SODIUM INJECTION [Suspect]
     Route: 058
     Dates: start: 20080217, end: 20080219
  149. HEPARIN SODIUM 5,000 UNITS IN DEXTROSE 5% [Suspect]
     Indication: THROMBOSIS PROPHYLAXIS
     Route: 041
     Dates: start: 20080127, end: 20080128
  150. HEPARIN SODIUM INJECTION [Suspect]
     Route: 042
     Dates: start: 20080122, end: 20080126
  151. HEPARIN SODIUM INJECTION [Suspect]
     Route: 042
     Dates: start: 20080128, end: 20080128
  152. INDOMETHACIN [Suspect]
     Indication: PRODUCT USED FOR UNKNOWN INDICATION
     Route: 048
     Dates: start: 20080101, end: 20080128
  153. PREDNISONE [Suspect]
     Indication: ASTHMA
     Route: 048
     Dates: start: 20080101
  154. POTASSIUM CHLORIDE [Concomitant]
     Indication: PRODUCT USED FOR UNKNOWN INDICATION
     Route: 065
  155. PREDNISONE [Concomitant]
     Indication: PRODUCT USED FOR UNKNOWN INDICATION
     Route: 065
  156. AMITRIPTYLINE [Concomitant]
     Indication: PRODUCT USED FOR UNKNOWN INDICATION
     Route: 065
  157. ADVAIR DISKUS 100/50 [Concomitant]
     Indication: PRODUCT USED FOR UNKNOWN INDICATION
     Route: 065
  158. LEXAPRO [Concomitant]
     Indication: PRODUCT USED FOR UNKNOWN INDICATION
     Route: 065
  159. TIZANIDINE HCL [Concomitant]
     Indication: PRODUCT USED FOR UNKNOWN INDICATION
     Route: 065
  160. VANCOMYCIN [Concomitant]
     Indication: PRODUCT USED FOR UNKNOWN INDICATION
     Route: 065
  161. ZOSYN [Concomitant]
     Indication: PRODUCT USED FOR UNKNOWN INDICATION
     Route: 065
  162. DOCUSATE SODIUM [Concomitant]
     Indication: PRODUCT USED FOR UNKNOWN INDICATION
     Route: 065
  163. HYDROCODONE [Concomitant]
     Indication: PRODUCT USED FOR UNKNOWN INDICATION
     Route: 065
  164. ZOFRAN [Concomitant]
     Indication: PRODUCT USED FOR UNKNOWN INDICATION
     Route: 065
  165. TYLENOL [Concomitant]
     Indication: PRODUCT USED FOR UNKNOWN INDICATION
     Route: 065
  166. AMBIEN [Concomitant]
     Indication: PRODUCT USED FOR UNKNOWN INDICATION
     Route: 065
  167. REGLAN [Concomitant]
     Indication: PRODUCT USED FOR UNKNOWN INDICATION
     Route: 042
  168. CELEXA [Concomitant]
     Indication: PRODUCT USED FOR UNKNOWN INDICATION
     Route: 065
  169. FENTANYL [Concomitant]
     Indication: PRODUCT USED FOR UNKNOWN INDICATION
     Route: 065
  170. IPRATROPIUM BROMIDE [Concomitant]
     Indication: PRODUCT USED FOR UNKNOWN INDICATION
     Route: 055
  171. FERRLECIT                               /USA/ [Concomitant]
     Indication: PRODUCT USED FOR UNKNOWN INDICATION
     Route: 042
  172. PHENERGAN [Concomitant]
     Indication: PRODUCT USED FOR UNKNOWN INDICATION
     Route: 042
  173. INSULIN [Concomitant]
     Indication: PRODUCT USED FOR UNKNOWN INDICATION
     Route: 065
  174. PULMICORT [Concomitant]
     Indication: PRODUCT USED FOR UNKNOWN INDICATION
     Route: 065
  175. DUONEB [Concomitant]
     Indication: PRODUCT USED FOR UNKNOWN INDICATION
     Route: 065
  176. XANAX [Concomitant]
     Indication: PRODUCT USED FOR UNKNOWN INDICATION
     Route: 065
  177. PRILOSEC [Concomitant]
     Indication: PRODUCT USED FOR UNKNOWN INDICATION
     Route: 065
  178. DURAGESIC-100 [Concomitant]
     Indication: PRODUCT USED FOR UNKNOWN INDICATION
     Route: 065
  179. NORCO [Concomitant]
     Indication: PRODUCT USED FOR UNKNOWN INDICATION
     Route: 065
  180. PROTONIX [Concomitant]
     Indication: PRODUCT USED FOR UNKNOWN INDICATION
     Route: 065
  181. DIPHENHYDRAMINE [Concomitant]
     Indication: PRODUCT USED FOR UNKNOWN INDICATION
     Route: 065
  182. CYCLOBENZAPRINE [Concomitant]
     Indication: PRODUCT USED FOR UNKNOWN INDICATION
     Route: 065
  183. DILAUDID [Concomitant]
     Indication: PRODUCT USED FOR UNKNOWN INDICATION
     Route: 065
  184. DARVOCET-N 100 [Concomitant]
     Indication: PRODUCT USED FOR UNKNOWN INDICATION
     Route: 065
  185. BENTYL [Concomitant]
     Indication: PRODUCT USED FOR UNKNOWN INDICATION
     Route: 065
  186. LASIX [Concomitant]
     Indication: PRODUCT USED FOR UNKNOWN INDICATION
     Route: 065
  187. COREG [Concomitant]
     Indication: PRODUCT USED FOR UNKNOWN INDICATION
     Route: 065
  188. ALBUTEROL [Concomitant]
     Indication: PRODUCT USED FOR UNKNOWN INDICATION
     Route: 065
  189. PREDNISONE [Concomitant]
     Route: 065
  190. PREDNISONE [Concomitant]
     Route: 065
  191. PREDNISONE [Concomitant]
     Route: 065

REACTIONS (51)
  - ANXIETY [None]
  - ASTHENIA [None]
  - ATRIAL FIBRILLATION [None]
  - BLISTER [None]
  - CARDIAC ENZYMES INCREASED [None]
  - CARDIAC FAILURE CONGESTIVE [None]
  - CATHETER SITE HAEMORRHAGE [None]
  - CHEST PAIN [None]
  - CHILLS [None]
  - COLITIS [None]
  - CONSTIPATION [None]
  - EAR DISORDER [None]
  - EPISTAXIS [None]
  - GASTRIC ULCER [None]
  - GASTROINTESTINAL HAEMORRHAGE [None]
  - GASTROOESOPHAGEAL REFLUX DISEASE [None]
  - HAEMORRHAGIC ANAEMIA [None]
  - HEPATIC FAILURE [None]
  - HISTIOCYTOSIS HAEMATOPHAGIC [None]
  - HYPOKALAEMIA [None]
  - HYPOTENSION [None]
  - IMMUNOSUPPRESSION [None]
  - INCONTINENCE [None]
  - INSOMNIA [None]
  - INTESTINAL FUNCTIONAL DISORDER [None]
  - LEUKOCYTOSIS [None]
  - MALNUTRITION [None]
  - METABOLIC ENCEPHALOPATHY [None]
  - MOUTH HAEMORRHAGE [None]
  - MULTI-ORGAN FAILURE [None]
  - MYALGIA [None]
  - NAUSEA [None]
  - NEURALGIA [None]
  - OSTEONECROSIS [None]
  - PANCREATIC DISORDER [None]
  - POST PROCEDURAL HAEMORRHAGE [None]
  - PULMONARY OEDEMA [None]
  - RASH PRURITIC [None]
  - RENAL FAILURE ACUTE [None]
  - RESPIRATORY FAILURE [None]
  - RESPIRATORY SYNCYTIAL VIRUS INFECTION [None]
  - SEPSIS [None]
  - SKIN DISORDER [None]
  - SPLENOMEGALY [None]
  - STILL'S DISEASE ADULT ONSET [None]
  - TACHYCARDIA [None]
  - THROMBOCYTOPENIA [None]
  - TRACHEAL STENOSIS [None]
  - TREMOR [None]
  - URINARY RETENTION [None]
  - VOMITING [None]
